FAERS Safety Report 14283457 (Version 1)
Quarter: 2017Q4

REPORT INFORMATION
  Report Type: Spontaneous
  Country: US (occurrence: US)
  Receive Date: 20171213
  Receipt Date: 20171213
  Transmission Date: 20180321
  Serious: No
  Sender: FDA-Public Use
  Company Number: US-009507513-1712USA005730

PATIENT
  Sex: Female

DRUGS (1)
  1. BELSOMRA [Suspect]
     Active Substance: SUVOREXANT
     Dosage: HALF OF 20MG TABLET, NIGHTLY (QPM)
     Route: 048

REACTIONS (3)
  - Incorrect dosage administered [Unknown]
  - Wrong technique in product usage process [Unknown]
  - No adverse event [Unknown]
